FAERS Safety Report 7344834-2 (Version None)
Quarter: 2011Q1

REPORT INFORMATION
  Report Type: 
  Country: None (occurrence: None)
  Receive Date: 20110228
  Receipt Date: 20110215
  Transmission Date: 20110831
  Serious: Yes (Hospitalization)
  Sender: FDA-Public Use
  Company Number: MPS1-1000452

PATIENT
  Age: 11 Year
  Sex: Female
  Weight: 12.5 kg

DRUGS (1)
  1. ALDURAZYME [Suspect]
     Indication: MUCOPOLYSACCHARIDOSIS
     Dosage: 3, INTRAVENOUS
     Route: 042
     Dates: start: 20100709

REACTIONS (10)
  - WEIGHT DECREASED [None]
  - HYPOPHAGIA [None]
  - DECREASED APPETITE [None]
  - EYELID OEDEMA [None]
  - FACE OEDEMA [None]
  - OEDEMA PERIPHERAL [None]
  - SECRETION DISCHARGE [None]
  - PROTEIN TOTAL DECREASED [None]
  - COUGH [None]
  - ELECTROLYTE IMBALANCE [None]
